FAERS Safety Report 5155515-8 (Version None)
Quarter: 2006Q4

REPORT INFORMATION
  Report Type: 
  Country: None (occurrence: None)
  Receive Date: 20061121
  Receipt Date: 20060913
  Transmission Date: 20070319
  Serious: Yes (Hospitalization)
  Sender: FDA-Public Use
  Company Number: AU-PURDUE-DEU_2006_0002472

PATIENT
  Age: 70 Year
  Sex: Female

DRUGS (9)
  1. OXYCODONE HYDROCHLORIDE CR TABLETS [Suspect]
     Indication: PAIN
     Dosage: 40 MG, BID
     Route: 048
  2. FLUVOXAMINE MALEATE [Suspect]
     Indication: DRUG USE FOR UNKNOWN INDICATION
     Dosage: 200 MG, AM
  3. DOXEPIN HCL [Concomitant]
  4. DICLOFENAC SODIUM [Concomitant]
  5. RALOXIFENE [Concomitant]
  6. CALCIUM CARBONATE [Concomitant]
  7. DILTIAZEM HCL [Concomitant]
  8. SIMVASTATIN [Concomitant]
  9. OXYCODONE HCL [Suspect]
     Indication: PAIN
     Dosage: 10 MG, PRN
     Route: 048

REACTIONS (4)
  - DRUG INTERACTION [None]
  - FALL [None]
  - FOREARM FRACTURE [None]
  - SEROTONIN SYNDROME [None]
